FAERS Safety Report 23871002 (Version 2)
Quarter: 2025Q3

REPORT INFORMATION
  Report Type: Spontaneous
  Country: EU (occurrence: EU)
  Receive Date: 20240518
  Receipt Date: 20250926
  Transmission Date: 20251021
  Serious: Yes (Hospitalization, Other)
  Sender: AUROBINDO
  Company Number: EU-ROCHE-2698655

PATIENT
  Age: 62 Year
  Sex: Female
  Weight: 59.9 kg

DRUGS (23)
  1. CARBOPLATIN [Suspect]
     Active Substance: CARBOPLATIN
     Indication: Small cell lung cancer extensive stage
     Route: 065
     Dates: start: 20200706
  2. ETOPOSIDE [Suspect]
     Active Substance: ETOPOSIDE
     Indication: Small cell lung cancer extensive stage
     Route: 065
     Dates: start: 20200706
  3. ATEZOLIZUMAB [Suspect]
     Active Substance: ATEZOLIZUMAB
     Indication: Small cell lung cancer extensive stage
     Route: 042
     Dates: start: 20200706
  4. CARBOPLATIN [Concomitant]
     Active Substance: CARBOPLATIN
     Indication: Neoplasm malignant
     Route: 065
  5. ETOPOSIDE [Concomitant]
     Active Substance: ETOPOSIDE
     Indication: Neoplasm malignant
     Route: 065
  6. MEDROL [Concomitant]
     Active Substance: METHYLPREDNISOLONE
     Indication: Pneumonitis
     Route: 065
     Dates: start: 20200706
  7. MEDROL [Concomitant]
     Active Substance: METHYLPREDNISOLONE
     Indication: Prophylaxis
     Route: 065
     Dates: start: 20201009
  8. Magnetop [Concomitant]
     Indication: Prophylaxis
     Route: 065
     Dates: start: 20200707
  9. GLUCION [Concomitant]
     Active Substance: ANHYDROUS DEXTROSE\LACTIC ACID\MAGNESIUM CHLORIDE\POTASSIUM CHLORIDE\POTASSIUM PHOSPHATE, MONOBASIC\
     Indication: Febrile neutropenia
     Route: 065
     Dates: start: 20200831
  10. NEULASTA [Concomitant]
     Active Substance: PEGFILGRASTIM
     Indication: Prophylaxis
     Route: 065
     Dates: start: 20200708
  11. DAFALGAN [Concomitant]
     Active Substance: ACETAMINOPHEN
     Indication: Prophylaxis
     Route: 065
     Dates: start: 20190716
  12. Akynzeo [Concomitant]
     Indication: Prophylaxis
     Route: 065
     Dates: start: 20200706
  13. BISOPROLOL [Concomitant]
     Active Substance: BISOPROLOL
     Indication: Product used for unknown indication
     Route: 065
     Dates: start: 20210208
  14. AVELOX [Concomitant]
     Active Substance: MOXIFLOXACIN HYDROCHLORIDE
     Indication: Febrile neutropenia
     Route: 065
     Dates: start: 20200829
  15. TRELEGY ELLIPTA [Concomitant]
     Active Substance: FLUTICASONE FUROATE\UMECLIDINIUM BROMIDE\VILANTEROL TRIFENATATE
     Indication: Chronic obstructive pulmonary disease
     Route: 065
     Dates: start: 201811
  16. PRIMPERAN [Concomitant]
     Active Substance: METOCLOPRAMIDE HYDROCHLORIDE
     Indication: Prophylaxis
     Route: 065
     Dates: start: 20200817
  17. CISPLATIN [Concomitant]
     Active Substance: CISPLATIN
     Indication: Neoplasm malignant
     Route: 065
  18. ALPRAZOLAM [Concomitant]
     Active Substance: ALPRAZOLAM
     Indication: Anxiety
     Route: 065
     Dates: start: 202004
  19. ALIZAPRIDE HYDROCHLORIDE [Concomitant]
     Active Substance: ALIZAPRIDE HYDROCHLORIDE
     Indication: Prophylaxis
     Route: 065
     Dates: start: 20190603
  20. HUMAN RED BLOOD CELL [Concomitant]
     Active Substance: HUMAN RED BLOOD CELL
     Indication: Anaemia
     Route: 065
     Dates: start: 20200817, end: 20201009
  21. HUMAN RED BLOOD CELL [Concomitant]
     Active Substance: HUMAN RED BLOOD CELL
     Route: 065
     Dates: start: 20201009, end: 20201009
  22. HUMAN RED BLOOD CELL [Concomitant]
     Active Substance: HUMAN RED BLOOD CELL
     Route: 065
     Dates: start: 20200830, end: 20200830
  23. Pantomed [Concomitant]
     Indication: Product used for unknown indication
     Dosage: 40 MILLIGRAM, ONCE A DAY
     Route: 065
     Dates: start: 20200817

REACTIONS (1)
  - Pneumonitis [Recovered/Resolved]

NARRATIVE: CASE EVENT DATE: 20201008
